FAERS Safety Report 20749333 (Version 2)
Quarter: 2022Q2

REPORT INFORMATION
  Report Type: Spontaneous
  Country: TR (occurrence: TR)
  Receive Date: 20220426
  Receipt Date: 20220620
  Transmission Date: 20220721
  Serious: Yes (Life-Threatening, Hospitalization, Other)
  Sender: FDA-Public Use
  Company Number: TR-CELGENE-TUR-20220200025

PATIENT
  Age: 73 Year
  Sex: Male
  Weight: 74.4 kg

DRUGS (26)
  1. AZACITIDINE [Suspect]
     Active Substance: AZACITIDINE
     Indication: Myelodysplastic syndrome
     Dosage: 75 MILLIGRAM/SQ. METER, FREQUENCY 7 IN 28 DAYS
     Route: 058
     Dates: start: 20210426, end: 20211220
  2. VENETOCLAX [Suspect]
     Active Substance: VENETOCLAX
     Indication: Myelodysplastic syndrome
     Dosage: 400 MILLIGRAM, FREQUENCY: 14/28 DAYS
     Route: 048
     Dates: start: 20210426, end: 20210606
  3. VENETOCLAX [Suspect]
     Active Substance: VENETOCLAX
     Dosage: 200 MILLIGRAM, FREQUENCY: 14/28 DAYS
     Route: 048
     Dates: start: 20210618, end: 20210919
  4. VENETOCLAX [Suspect]
     Active Substance: VENETOCLAX
     Dosage: 100 MILLIGRAM, FREQUENCY: 14/28 DAYS
     Route: 048
     Dates: start: 20211108, end: 20211219
  5. VALACYCLOVIR HYDROCHLORIDE [Concomitant]
     Active Substance: VALACYCLOVIR HYDROCHLORIDE
     Indication: Infection prophylaxis
     Dosage: 500 MILLIGRAM
     Route: 048
     Dates: start: 20210426
  6. DIGOXIN [Concomitant]
     Active Substance: DIGOXIN
     Indication: Myocardial infarction
     Dosage: .25 MILLIGRAM
     Route: 048
     Dates: start: 20210410, end: 20220125
  7. EPLERENONE [Concomitant]
     Active Substance: EPLERENONE
     Indication: Myocardial infarction
     Dosage: 25 MILLIGRAM
     Route: 048
     Dates: start: 20211101
  8. KYTRIL [Concomitant]
     Active Substance: GRANISETRON HYDROCHLORIDE
     Indication: Premedication
     Dosage: 3 MILLIGRAM
     Route: 042
     Dates: start: 20210426
  9. VORICONAZOLE [Concomitant]
     Active Substance: VORICONAZOLE
     Indication: Bronchopulmonary aspergillosis
     Dosage: 200 MILLIGRAM
     Route: 048
     Dates: start: 20211025, end: 20220125
  10. LENOGRASTIM [Concomitant]
     Active Substance: LENOGRASTIM
     Indication: Premedication
     Dosage: FREQUENCY TEXT: AS REQUIRED?3MG/3ML
     Route: 042
     Dates: start: 20210910
  11. DEFERASIROX [Concomitant]
     Active Substance: DEFERASIROX
     Indication: Infection prophylaxis
     Dosage: 500 MILLIGRAM
     Route: 048
     Dates: start: 20211125, end: 20220122
  12. DEFERASIROX [Concomitant]
     Active Substance: DEFERASIROX
     Route: 048
     Dates: start: 20220308
  13. FENTANYL [Concomitant]
     Active Substance: FENTANYL
     Indication: Arthritis bacterial
     Dosage: FREQUENCY TEXT: 1 AS REQUIRED
     Route: 062
     Dates: start: 20220113
  14. HIRUDOID FORTE [Concomitant]
     Indication: Haemorrhage
     Dosage: FREQUENCY TEXT: 1 AS REQUIRED
     Route: 061
     Dates: start: 20210820
  15. MOXAI [Concomitant]
     Indication: Conjunctivitis
     Dosage: 5 PERCENT, THRICE DAILY
     Route: 047
     Dates: start: 20220111, end: 20220122
  16. CALBICOR [Concomitant]
     Indication: Myocardial infarction
     Dosage: FREQUENCY TEXT: NOT PROVIDED
     Route: 048
     Dates: start: 20220120
  17. MUPIROCIN CALCIUM [Concomitant]
     Active Substance: MUPIROCIN CALCIUM
     Indication: Arthritis bacterial
     Dosage: FREQUENCY TEXT: NOT PROVIDED
     Route: 061
     Dates: start: 20220122, end: 20220122
  18. SODIUM CHLORIDE [Concomitant]
     Active Substance: SODIUM CHLORIDE
     Indication: Dehydration
     Dosage: FREQUENCY TEXT: NOT PROVIDED
     Route: 042
     Dates: start: 20220123
  19. MAGNESIUM HYDROXIDE [Concomitant]
     Active Substance: MAGNESIUM HYDROXIDE
     Indication: Blood magnesium decreased
     Dosage: 400 MILLIGRAM
     Route: 048
     Dates: start: 20220123
  20. CARBONATE [Concomitant]
     Indication: Blood bicarbonate decreased
     Dosage: 400 MILLIGRAM
     Route: 048
     Dates: start: 20220123
  21. PHENIRAMINE MALEATE [Concomitant]
     Active Substance: PHENIRAMINE MALEATE
     Indication: Premedication
     Route: 065
     Dates: start: 20211124
  22. XANAX [Concomitant]
     Active Substance: ALPRAZOLAM
     Indication: Insomnia
     Route: 048
     Dates: start: 20220313
  23. LEAD ACETATE [Concomitant]
     Active Substance: LEAD ACETATE
     Indication: Superficial vein thrombosis
     Route: 061
     Dates: start: 20220123, end: 20220126
  24. TRAMOSEL [Concomitant]
     Indication: Febrile neutropenia
     Route: 042
     Dates: start: 20211124, end: 20220113
  25. NEXIUM [Concomitant]
     Active Substance: ESOMEPRAZOLE MAGNESIUM
     Indication: Febrile neutropenia
     Route: 048
     Dates: start: 20220117
  26. VESICARE [Concomitant]
     Active Substance: SOLIFENACIN SUCCINATE
     Indication: Neutropenic sepsis
     Route: 048
     Dates: start: 20211228, end: 20220201

REACTIONS (3)
  - Febrile neutropenia [Recovered/Resolved]
  - Klebsiella sepsis [Recovered/Resolved]
  - Staphylococcal sepsis [Recovered/Resolved]

NARRATIVE: CASE EVENT DATE: 20220123
